FAERS Safety Report 10512836 (Version 2)
Quarter: 2014Q4

REPORT INFORMATION
  Report Type: Report from Study
  Country: DE (occurrence: DE)
  Receive Date: 20141013
  Receipt Date: 20141016
  Transmission Date: 20150528
  Serious: Yes (Hospitalization)
  Sender: FDA-Public Use
  Company Number: DE-ROCHE-1471270

PATIENT
  Age: 62 Year
  Sex: Male

DRUGS (15)
  1. METHOTREXATE [Suspect]
     Active Substance: METHOTREXATE
     Indication: RHEUMATOID ARTHRITIS
     Route: 065
     Dates: end: 201401
  2. PREDNISOLONE. [Concomitant]
     Active Substance: PREDNISOLONE
  3. ATORVASTATIN [Concomitant]
     Active Substance: ATORVASTATIN
  4. FOLIC ACID. [Concomitant]
     Active Substance: FOLIC ACID
  5. ALENDRONIC ACID [Concomitant]
     Active Substance: ALENDRONIC ACID
  6. TINZAPARIN [Concomitant]
     Active Substance: TINZAPARIN
  7. XARELTO [Concomitant]
     Active Substance: RIVAROXABAN
  8. METAMIZOL [Concomitant]
     Active Substance: METAMIZOLE SODIUM
  9. RAMIPRIL. [Concomitant]
     Active Substance: RAMIPRIL
  10. TOCILIZUMAB [Suspect]
     Active Substance: TOCILIZUMAB
     Indication: RHEUMATOID ARTHRITIS
     Route: 065
     Dates: end: 20140107
  11. ASPIRIN. [Concomitant]
     Active Substance: ASPIRIN
  12. MORPHINE [Concomitant]
     Active Substance: MORPHINE
  13. METHOTREXATE [Suspect]
     Active Substance: METHOTREXATE
     Route: 065
     Dates: start: 201409
  14. NEBIVOLOL [Concomitant]
     Active Substance: NEBIVOLOL
  15. BERODUAL [Concomitant]
     Active Substance: FENOTEROL HYDROBROMIDE\IPRATROPIUM BROMIDE

REACTIONS (5)
  - Quadriparesis [Not Recovered/Not Resolved]
  - Critical illness polyneuropathy [Not Recovered/Not Resolved]
  - Arthritis bacterial [Not Recovered/Not Resolved]
  - Pneumonia [Not Recovered/Not Resolved]
  - Deep vein thrombosis [Recovered/Resolved]
